FAERS Safety Report 17159491 (Version 2)
Quarter: 2020Q2

REPORT INFORMATION
  Report Type: Report from Study
  Country: US (occurrence: US)
  Receive Date: 20191216
  Receipt Date: 20200416
  Transmission Date: 20200713
  Serious: Yes (Hospitalization, Other)
  Sender: FDA-Public Use
  Company Number: US-GLAXOSMITHKLINE-2019-TSO02951-US

PATIENT
  Age: 72 Year
  Sex: Female

DRUGS (2)
  1. NIRAPARIB [Suspect]
     Active Substance: NIRAPARIB
     Indication: OVARIAN CANCER
     Dosage: 200 MG, QD
     Route: 048
     Dates: start: 20190817
  2. NIRAPARIB [Suspect]
     Active Substance: NIRAPARIB
     Dosage: UNK
     Dates: end: 20191119

REACTIONS (3)
  - Malignant neoplasm progression [Unknown]
  - Fistula [Recovering/Resolving]
  - Surgery [Recovered/Resolved]

NARRATIVE: CASE EVENT DATE: 20191126
